FAERS Safety Report 14218718 (Version 1)
Quarter: 2017Q4

REPORT INFORMATION
  Report Type: Spontaneous
  Country: IT (occurrence: IT)
  Receive Date: 20171123
  Receipt Date: 20171123
  Transmission Date: 20180321
  Serious: Yes (Hospitalization)
  Sender: FDA-Public Use
  Company Number: IT-JNJFOC-20171118403

PATIENT
  Age: 61 Year
  Sex: Female

DRUGS (1)
  1. USTEKINUMAB [Suspect]
     Active Substance: USTEKINUMAB
     Indication: PUSTULAR PSORIASIS
     Route: 058

REACTIONS (1)
  - Drug-induced liver injury [Recovered/Resolved]
